FAERS Safety Report 5392122-6 (Version None)
Quarter: 2007Q3

REPORT INFORMATION
  Report Type: 
  Country: None (occurrence: None)
  Receive Date: 20070720
  Receipt Date: 20070711
  Transmission Date: 20080115
  Serious: Yes (Hospitalization)
  Sender: FDA-Public Use
  Company Number: JP-JNJFOC-20030905317

PATIENT
  Sex: Male
  Weight: 53 kg

DRUGS (11)
  1. REMICADE [Suspect]
     Route: 042
     Dates: start: 20030812, end: 20030826
  2. REMICADE [Suspect]
     Indication: RHEUMATOID ARTHRITIS
     Route: 042
     Dates: start: 20030812, end: 20030826
  3. RHEUMATREX [Suspect]
     Route: 048
  4. RHEUMATREX [Suspect]
     Route: 048
  5. RHEUMATREX [Suspect]
     Route: 048
  6. RHEUMATREX [Suspect]
     Route: 048
  7. RHEUMATREX [Suspect]
     Indication: RHEUMATOID ARTHRITIS
     Route: 048
  8. PREDONINE [Concomitant]
     Route: 048
     Dates: start: 20030812
  9. VOLTAREN [Concomitant]
     Route: 048
  10. MUCOSTA [Concomitant]
     Route: 048
     Dates: start: 20030812
  11. ARAVA [Concomitant]
     Route: 048

REACTIONS (2)
  - PNEUMOCYSTIS JIROVECI INFECTION [None]
  - PYREXIA [None]
